FAERS Safety Report 6998251-5 (Version None)
Quarter: 2010Q3

REPORT INFORMATION
  Report Type: 
  Country: None (occurrence: None)
  Receive Date: 20100920
  Receipt Date: 20100331
  Transmission Date: 20110219
  Serious: No
  Sender: FDA-Public Use
  Company Number: US-ASTRAZENECA-2010SE14185

PATIENT
  Age: 78 Year
  Sex: Female

DRUGS (2)
  1. SEROQUEL [Suspect]
     Indication: MAJOR DEPRESSION
     Route: 048
     Dates: start: 20100323, end: 20100323
  2. ARIPIPRAZOLE [Concomitant]
     Indication: WITHDRAWAL SYNDROME

REACTIONS (2)
  - AGITATION [None]
  - SLEEP DISORDER [None]
